FAERS Safety Report 5005761-9 (Version None)
Quarter: 2006Q2

REPORT INFORMATION
  Report Type: 
  Country: None (occurrence: None)
  Receive Date: 20060518
  Receipt Date: 20060327
  Transmission Date: 20061013
  Serious: Yes (Other)
  Sender: FDA-Public Use
  Company Number: US-BRISTOL-MYERS SQUIBB COMPANY-13327010

PATIENT
  Age: 77 Year
  Sex: Female

DRUGS (12)
  1. CARBOPLATIN [Suspect]
     Indication: NON-SMALL CELL LUNG CANCER
     Route: 042
     Dates: start: 20060308, end: 20060308
  2. PACLITAXEL [Suspect]
     Indication: NON-SMALL CELL LUNG CANCER
     Route: 042
     Dates: start: 20060308, end: 20060308
  3. SORAFENIB [Suspect]
     Indication: NON-SMALL CELL LUNG CANCER
     Route: 048
     Dates: start: 20060219, end: 20060305
  4. SORAFENIB [Suspect]
     Route: 048
     Dates: start: 20060322, end: 20060329
  5. PRINIVIL TABS 20 MG [Concomitant]
     Indication: HYPERTENSION
     Route: 048
  6. LEVOTHYROXINE SODIUM [Concomitant]
     Indication: HYPOTHYROIDISM
     Route: 048
  7. CIPRO [Concomitant]
     Indication: PROPHYLAXIS
     Route: 048
     Dates: start: 20060227, end: 20060309
  8. NEURONTIN [Concomitant]
     Indication: NEUROPATHY
     Route: 048
     Dates: start: 20060222
  9. BENADRYL [Concomitant]
     Indication: PREMEDICATION
     Route: 042
     Dates: start: 20060215, end: 20060215
  10. TAGAMET [Concomitant]
     Indication: PREMEDICATION
     Route: 042
     Dates: start: 20060215, end: 20060215
  11. ALOXI [Concomitant]
     Indication: PREMEDICATION
     Dates: start: 20060215, end: 20060215
  12. DECADRON SRC [Concomitant]
     Indication: PREMEDICATION
     Route: 042
     Dates: start: 20060215, end: 20060215

REACTIONS (2)
  - DEEP VEIN THROMBOSIS [None]
  - LIVER FUNCTION TEST ABNORMAL [None]
